FAERS Safety Report 23073639 (Version 1)
Quarter: 2023Q4

REPORT INFORMATION
  Report Type: Report from Study
  Country: HK (occurrence: None)
  Receive Date: 20231017
  Receipt Date: 20231017
  Transmission Date: 20240110
  Serious: Yes (Death, Life-Threatening)
  Sender: FDA-Public Use
  Company Number: 2023A228849

PATIENT
  Age: 65 Year
  Sex: Female
  Weight: 45.1 kg

DRUGS (22)
  1. CILGAVIMAB\TIXAGEVIMAB [Suspect]
     Active Substance: CILGAVIMAB\TIXAGEVIMAB
     Indication: COVID-19 prophylaxis
     Dosage: 600.0MG ONCE/SINGLE ADMINISTRATION
     Route: 030
     Dates: start: 20221125, end: 20221125
  2. ACYCLOVIR [Concomitant]
     Active Substance: ACYCLOVIR
     Indication: Prophylaxis
     Route: 048
     Dates: start: 20220801
  3. CALCIUM CARBONATE, VITAMIN D [Concomitant]
     Indication: Nutritional supplementation
     Route: 048
     Dates: start: 20220210
  4. CHLORPHENIRAMINE MALEATE [Concomitant]
     Active Substance: CHLORPHENIRAMINE MALEATE
     Route: 048
     Dates: start: 20220210
  5. CLOTRIMAZOLE [Concomitant]
     Active Substance: CLOTRIMAZOLE
     Dosage: AS REQUIRED
     Route: 061
     Dates: start: 20230222
  6. COTRIMOXAZOLE [Concomitant]
     Active Substance: SULFAMETHOXAZOLE\TRIMETHOPRIM
     Indication: Nutritional supplementation
     Dosage: AS REQUIRED
     Route: 048
     Dates: start: 20230802
  7. COTRIMOXAZOLE [Concomitant]
     Active Substance: SULFAMETHOXAZOLE\TRIMETHOPRIM
     Indication: Antibiotic prophylaxis
     Dosage: AS REQUIRED
     Route: 048
     Dates: start: 20230802
  8. DIGOXIN [Concomitant]
     Active Substance: DIGOXIN
     Dosage: AS REQUIRED
     Route: 048
     Dates: start: 20230215
  9. ENTECAVIR [Concomitant]
     Active Substance: ENTECAVIR
     Indication: Chronic hepatitis B
     Route: 048
     Dates: start: 20220801
  10. FAKTU [Concomitant]
     Dosage: AS REQUIRED
     Route: 054
     Dates: start: 20230112
  11. NITROGLYCERIN [Concomitant]
     Active Substance: NITROGLYCERIN
     Route: 048
     Dates: start: 20230221
  12. LACTULOSE [Concomitant]
     Active Substance: LACTULOSE
     Dosage: AS REQUIRED
     Route: 048
     Dates: start: 20220722
  13. LOSARTAN POTASSIUM [Concomitant]
     Active Substance: LOSARTAN POTASSIUM
     Indication: Hypertension
     Dosage: AS REQUIRED
     Route: 048
     Dates: start: 20210708
  14. ACETAMINOPHEN [Concomitant]
     Active Substance: ACETAMINOPHEN
     Dosage: AS REQUIRED
     Route: 048
     Dates: start: 20210708
  15. SENNA [Concomitant]
     Active Substance: SENNA LEAF\SENNOSIDES\SENNOSIDES A AND B
     Indication: Nutritional supplementation
     Dosage: AS REQUIRED
     Route: 048
     Dates: start: 20220722
  16. FEXOFENADINE HYDROCHLORIDE\PSEUDOEPHEDRINE HYDROCHLORIDE [Concomitant]
     Active Substance: FEXOFENADINE HYDROCHLORIDE\PSEUDOEPHEDRINE HYDROCHLORIDE
     Route: 048
     Dates: start: 20210708
  17. TRAMADOL HCL [Concomitant]
     Active Substance: TRAMADOL HYDROCHLORIDE
     Route: 048
     Dates: start: 20211230
  18. ZOPICLONE [Concomitant]
     Active Substance: ZOPICLONE
     Route: 048
     Dates: start: 20230112
  19. EDOXABAN TOSYLATE [Concomitant]
     Active Substance: EDOXABAN TOSYLATE
     Route: 048
     Dates: start: 20230507
  20. FUROSEMIDE [Concomitant]
     Active Substance: FUROSEMIDE
     Indication: Hypertension
     Dosage: AS REQUIRED
     Route: 048
     Dates: start: 20130826
  21. PANTOPRAZOLE SODIUM [Concomitant]
     Active Substance: PANTOPRAZOLE SODIUM
     Route: 048
     Dates: start: 20230525
  22. BISACODYL [Concomitant]
     Active Substance: BISACODYL
     Dosage: AS REQUIRED
     Route: 054
     Dates: start: 20230304, end: 20230912

REACTIONS (1)
  - COVID-19 [Fatal]

NARRATIVE: CASE EVENT DATE: 20230922
